FAERS Safety Report 23802956 (Version 1)
Quarter: 2024Q2

REPORT INFORMATION
  Report Type: Spontaneous
  Country: US (occurrence: US)
  Receive Date: 20240501
  Receipt Date: 20240501
  Transmission Date: 20240716
  Serious: Yes (Other)
  Sender: FDA-Public Use
  Company Number: EC-2024-160727

PATIENT
  Age: 61 Year
  Sex: Male

DRUGS (3)
  1. ASPIRIN [Suspect]
     Active Substance: ASPIRIN
  2. BONIVA [Concomitant]
     Active Substance: IBANDRONATE SODIUM
  3. LENVIMA [Concomitant]
     Active Substance: LENVATINIB
     Indication: Hepatocellular carcinoma
     Dosage: 12 MG, QD
     Route: 048
     Dates: start: 20231101

REACTIONS (2)
  - Faeces discoloured [Unknown]
  - Discoloured vomit [Unknown]
